FAERS Safety Report 14198155 (Version 1)
Quarter: 2017Q4

REPORT INFORMATION
  Report Type: Spontaneous
  Country: FR (occurrence: FR)
  Receive Date: 20171117
  Receipt Date: 20171117
  Transmission Date: 20180321
  Serious: Yes (Other)
  Sender: FDA-Public Use
  Company Number: FR-MERCK KGAA-2034461

PATIENT
  Age: 66 Year
  Sex: Female

DRUGS (12)
  1. LERCAN [Concomitant]
     Active Substance: LERCANIDIPINE
  2. NOVOTHYROX [Suspect]
     Active Substance: LEVOTHYROXINE SODIUM
     Dates: start: 201707
  3. DOLIPRANE [Concomitant]
     Active Substance: ACETAMINOPHEN
  4. ZOCOR [Concomitant]
     Active Substance: SIMVASTATIN
  5. KARDEGIC [Concomitant]
     Active Substance: ASPIRIN DL-LYSINE
  6. INIPOMP [Concomitant]
     Active Substance: PANTOPRAZOLE SODIUM
  7. NOVOTHYROX [Suspect]
     Active Substance: LEVOTHYROXINE SODIUM
     Dates: start: 20170704
  8. DEROXAT [Concomitant]
     Active Substance: PAROXETINE HYDROCHLORIDE
  9. KETOPROFENE [Concomitant]
     Active Substance: KETOPROFEN
  10. NOVOTHYROX [Suspect]
     Active Substance: LEVOTHYROXINE SODIUM
     Dates: start: 201707
  11. NOVOTHYROX [Suspect]
     Active Substance: LEVOTHYROXINE SODIUM
     Indication: THYROID MASS
     Route: 048
     Dates: start: 201705
  12. NOVOTHYROX [Suspect]
     Active Substance: LEVOTHYROXINE SODIUM
     Dates: start: 20171011

REACTIONS (8)
  - Alopecia [Not Recovered/Not Resolved]
  - Angina pectoris [Not Recovered/Not Resolved]
  - Myalgia [Not Recovered/Not Resolved]
  - Fatigue [Not Recovered/Not Resolved]
  - Depression [Not Recovered/Not Resolved]
  - Suicidal ideation [Not Recovered/Not Resolved]
  - Aggression [Not Recovered/Not Resolved]
  - Hyperhidrosis [Not Recovered/Not Resolved]

NARRATIVE: CASE EVENT DATE: 201705
